FAERS Safety Report 16897408 (Version 1)
Quarter: 2019Q4

REPORT INFORMATION
  Report Type: Report from Study
  Country: US (occurrence: US)
  Receive Date: 20191009
  Receipt Date: 20191009
  Transmission Date: 20200122
  Serious: No
  Sender: FDA-Public Use
  Company Number: US-EMD SERONO-9109181

PATIENT
  Age: 62 Year
  Sex: Female

DRUGS (2)
  1. MAVENCLAD [Suspect]
     Active Substance: CLADRIBINE
     Indication: MULTIPLE SCLEROSIS
     Dosage: FIRST CYCLE TREATMENT: TWO TABLETS ON DAYS ONE, TWO, THREE, FOUR AND ONE TABLET ON DAY FIVE.
     Route: 048
     Dates: start: 20190709, end: 20190713
  2. MAVENCLAD [Suspect]
     Active Substance: CLADRIBINE
     Dosage: SECOND CYCLE TREATMENT: TWO TABLETS ON DAYS ONE, TWO, THREE AND ONE TABLET ON DAYS FOUR AND FIVE. TH
     Route: 048
     Dates: start: 20190801

REACTIONS (3)
  - Overdose [Unknown]
  - Product administration error [Unknown]
  - Rhinorrhoea [Unknown]

NARRATIVE: CASE EVENT DATE: 201908
